FAERS Safety Report 6580604-0 (Version None)
Quarter: 2010Q1

REPORT INFORMATION
  Report Type: 
  Country: None (occurrence: None)
  Receive Date: 20100203
  Receipt Date: 20100120
  Transmission Date: 20100710
  Serious: Yes (Other)
  Sender: FDA-Public Use
  Company Number: 2009-4829

PATIENT
  Age: 72 Year
  Sex: Male

DRUGS (1)
  1. DYSPORT [Suspect]
     Indication: HYPERTONIC BLADDER
     Dosage: (250 UNITS, SINGLE
     Dates: start: 20091015, end: 20091015

REACTIONS (1)
  - URINARY RETENTION [None]
